FAERS Safety Report 7852480-7 (Version None)
Quarter: 2011Q3

REPORT INFORMATION
  Report Type: 
  Country: None (occurrence: None)
  Receive Date: 20110906
  Receipt Date: 20110614
  Transmission Date: 20111222
  Serious: No
  Sender: FDA-Public Use
  Company Number: 201105027

PATIENT
  Age: 54 Year
  Sex: Male

DRUGS (4)
  1. XIAFLEX [Suspect]
     Indication: DUPUYTREN'S CONTRACTURE
     Dosage: 0.58 MG, 1 IN 1 D, INTRALESIONAL, 0.58 MG, 1 IN 1 D, INTRALESIONAL, 0.58 MG, 1 IN 1 D, INTRALESIONAL
     Route: 026
     Dates: start: 20101011, end: 20101011
  2. XIAFLEX [Suspect]
     Indication: DUPUYTREN'S CONTRACTURE
     Dosage: 0.58 MG, 1 IN 1 D, INTRALESIONAL, 0.58 MG, 1 IN 1 D, INTRALESIONAL, 0.58 MG, 1 IN 1 D, INTRALESIONAL
     Route: 026
     Dates: start: 20100824, end: 20100824
  3. XIAFLEX [Suspect]
     Indication: DUPUYTREN'S CONTRACTURE
     Dosage: 0.58 MG, 1 IN 1 D, INTRALESIONAL, 0.58 MG, 1 IN 1 D, INTRALESIONAL, 0.58 MG, 1 IN 1 D, INTRALESIONAL
     Route: 026
     Dates: start: 20110103, end: 20110103
  4. ACTONEL [Concomitant]

REACTIONS (2)
  - OEDEMA PERIPHERAL [None]
  - CONTUSION [None]
